FAERS Safety Report 18882301 (Version 1)
Quarter: 2021Q1

REPORT INFORMATION
  Report Type: Report from Study
  Country: US (occurrence: US)
  Receive Date: 20210212
  Receipt Date: 20210212
  Transmission Date: 20210420
  Serious: No
  Sender: FDA-Public Use
  Company Number: US-IPSEN BIOPHARMACEUTICALS, INC.-2021-03168

PATIENT
  Age: 55 Year

DRUGS (1)
  1. DYSPORT [Suspect]
     Active Substance: ABOBOTULINUMTOXINA
     Indication: TORTICOLLIS
     Dosage: 110 U [ANTEROCOLLIS (30U), RETROCOLLIS (30U), TORTICOLLIS (20U) AND LATEROCOLLIS (30U)]
     Route: 065

REACTIONS (2)
  - Therapeutic response shortened [Unknown]
  - Muscle spasticity [Unknown]
